FAERS Safety Report 10048744 (Version 2)
Quarter: 2014Q2

REPORT INFORMATION
  Report Type: Spontaneous
  Country: UY (occurrence: UY)
  Receive Date: 20140331
  Receipt Date: 20140421
  Transmission Date: 20141212
  Serious: Yes (Other)
  Sender: FDA-Public Use
  Company Number: UY-WATSON-2014-05749

PATIENT
  Age: 1 Month
  Sex: 0

DRUGS (3)
  1. MEROPENEM (UNKNOWN) [Suspect]
     Indication: KLEBSIELLA TEST POSITIVE
     Dosage: 60 MG/KG, DAILY
     Route: 065
  2. AMIKACIN [Suspect]
     Indication: KLEBSIELLA TEST POSITIVE
     Dosage: 15 MG/KG, DAILY
     Route: 065
  3. VANCOMYCIN                         /00314402/ [Concomitant]
     Indication: KLEBSIELLA TEST POSITIVE
     Dosage: 40 MG/KG, DAILY
     Route: 065

REACTIONS (2)
  - Pathogen resistance [Unknown]
  - Treatment failure [Recovered/Resolved]
